FAERS Safety Report 15061273 (Version 1)
Quarter: 2018Q2

REPORT INFORMATION
  Report Type: Spontaneous
  Country: US (occurrence: US)
  Receive Date: 20180625
  Receipt Date: 20180625
  Transmission Date: 20180711
  Serious: No
  Sender: FDA-Public Use
  Company Number: US-ROCHE-2106494

PATIENT
  Age: 79 Year
  Sex: Male
  Weight: 95.79 kg

DRUGS (4)
  1. XELODA [Suspect]
     Active Substance: CAPECITABINE
     Route: 048
  2. XELODA [Suspect]
     Active Substance: CAPECITABINE
     Route: 048
  3. XELODA [Suspect]
     Active Substance: CAPECITABINE
     Indication: COLON CANCER
     Dosage: 4 PILLS IN MORNING AND 4 PILLS AT NIGHT
     Route: 048
     Dates: start: 20171227, end: 20180215
  4. XELODA [Suspect]
     Active Substance: CAPECITABINE
     Dosage: 3 PILLS IN THE MORNING AND 3 PILLS AT NIGHT ;ONGOING: YES
     Route: 048
     Dates: start: 201802

REACTIONS (2)
  - Palmar-plantar erythrodysaesthesia syndrome [Recovered/Resolved]
  - Accidental overdose [Unknown]

NARRATIVE: CASE EVENT DATE: 20180215
